FAERS Safety Report 12820809 (Version 2)
Quarter: 2016Q4

REPORT INFORMATION
  Report Type: Report from Study
  Country: US (occurrence: US)
  Receive Date: 20161007
  Receipt Date: 20161021
  Transmission Date: 20170207
  Serious: No
  Sender: FDA-Public Use
  Company Number: PHEH2016US025773

PATIENT
  Age: 55 Year
  Sex: Female

DRUGS (1)
  1. COSENTYX [Suspect]
     Active Substance: SECUKINUMAB
     Indication: PSORIASIS
     Dosage: 300 MG, QW
     Route: 058
     Dates: start: 20160923

REACTIONS (4)
  - Pruritus [Recovering/Resolving]
  - Swelling [Recovering/Resolving]
  - Psoriasis [Unknown]
  - Eczema [Unknown]

NARRATIVE: CASE EVENT DATE: 20161001
